FAERS Safety Report 9328933 (Version 1)
Quarter: 2013Q2

REPORT INFORMATION
  Report Type: Spontaneous
  Country: US (occurrence: US)
  Receive Date: 20130604
  Receipt Date: 20130604
  Transmission Date: 20140414
  Serious: No
  Sender: FDA-Public Use
  Company Number: US-SANOFI-AVENTIS-2013SA039403

PATIENT
  Sex: Female

DRUGS (3)
  1. LANTUS [Suspect]
     Indication: TYPE 2 DIABETES MELLITUS
     Route: 065
  2. LEVEMIR [Concomitant]
  3. HUMALOG [Concomitant]
     Indication: BLOOD GLUCOSE

REACTIONS (2)
  - Injection site bruising [Unknown]
  - Injection site erythema [Unknown]
